FAERS Safety Report 24134051 (Version 1)
Quarter: 2024Q3

REPORT INFORMATION
  Report Type: Report from Study
  Country: US (occurrence: US)
  Receive Date: 20240724
  Receipt Date: 20240724
  Transmission Date: 20241017
  Serious: Yes (Other)
  Sender: JAZZ
  Company Number: US-JAZZ PHARMACEUTICALS-2023-US-009707

PATIENT
  Sex: Female

DRUGS (5)
  1. XYWAV [Suspect]
     Active Substance: CALCIUM OXYBATE\MAGNESIUM OXYBATE\POTASSIUM OXYBATE\SODIUM OXYBATE
     Indication: Narcolepsy
     Dosage: 2.25 GRAM
  2. XYWAV [Suspect]
     Active Substance: CALCIUM OXYBATE\MAGNESIUM OXYBATE\POTASSIUM OXYBATE\SODIUM OXYBATE
     Indication: Cataplexy
     Dosage: 2.75 GRAM, QD
  3. XYWAV [Suspect]
     Active Substance: CALCIUM OXYBATE\MAGNESIUM OXYBATE\POTASSIUM OXYBATE\SODIUM OXYBATE
     Indication: Somnolence
  4. DULOXETINE [Concomitant]
     Active Substance: DULOXETINE
     Dosage: UNK
     Dates: start: 20230429
  5. TYLENOL [Concomitant]
     Active Substance: ACETAMINOPHEN
     Dosage: UNK

REACTIONS (9)
  - Peptic ulcer [Unknown]
  - Nausea [Unknown]
  - Dyspnoea [Recovered/Resolved]
  - Nasopharyngitis [Unknown]
  - Cough [Unknown]
  - COVID-19 [Unknown]
  - Rhinorrhoea [Unknown]
  - Headache [Unknown]
  - Panic attack [Unknown]
